FAERS Safety Report 5803396-9 (Version None)
Quarter: 2008Q3

REPORT INFORMATION
  Report Type: 
  Country: None (occurrence: None)
  Receive Date: 20080708
  Receipt Date: 20080626
  Transmission Date: 20090109
  Serious: Yes (Hospitalization, Other)
  Sender: FDA-Public Use
  Company Number: US-BAYER-200812388BCC

PATIENT
  Age: 61 Year
  Sex: Female
  Weight: 73 kg

DRUGS (15)
  1. ASPIRIN [Suspect]
     Indication: MYOCARDIAL INFARCTION
     Dosage: TOTAL DAILY DOSE: 81 MG  UNIT DOSE: 81 MG
     Route: 048
     Dates: start: 20070601
  2. MILK OF MAGNESIA TAB [Suspect]
     Indication: CONSTIPATION
     Dosage: TOTAL DAILY DOSE: 30 ML  UNIT DOSE: 30 ML
     Route: 048
     Dates: start: 20030101
  3. ONE A DAY VITAMINS [Suspect]
     Indication: ROUTINE HEALTH MAINTENANCE
     Route: 048
     Dates: start: 19970101
  4. CITRACAL [Suspect]
     Indication: VITAMIN SUPPLEMENTATION
     Route: 048
     Dates: start: 19970101
  5. BONIVA [Concomitant]
  6. PRILOSEC [Concomitant]
  7. LOPRESSOR [Concomitant]
  8. WALGREEN BRAND IRON [Concomitant]
  9. REQUIP [Concomitant]
  10. LASIX [Concomitant]
  11. NORVASC [Concomitant]
  12. CELEBREX [Concomitant]
  13. LEVSIN [Concomitant]
  14. PAXIL [Concomitant]
  15. LOPID [Concomitant]

REACTIONS (13)
  - ABDOMINAL PAIN UPPER [None]
  - ANAEMIA [None]
  - ARTERIOSCLEROSIS [None]
  - BLOOD PRESSURE SYSTOLIC INCREASED [None]
  - FAECES HARD [None]
  - GASTRIC ULCER PERFORATION [None]
  - HAEMATOCHEZIA [None]
  - INTESTINAL OBSTRUCTION [None]
  - JOINT ARTHROPLASTY [None]
  - MYOCARDIAL INFARCTION [None]
  - PERITONITIS [None]
  - RENAL CANCER [None]
  - TINNITUS [None]
